FAERS Safety Report 16333466 (Version 2)
Quarter: 2019Q2

REPORT INFORMATION
  Report Type: Spontaneous
  Country: US (occurrence: US)
  Receive Date: 20190520
  Receipt Date: 20190601
  Transmission Date: 20190711
  Serious: No
  Sender: FDA-Public Use
  Company Number: US-JNJFOC-20190512556

PATIENT
  Age: 28 Year
  Sex: Male
  Weight: 116 kg

DRUGS (3)
  1. IMBRUVICA [Suspect]
     Active Substance: IBRUTINIB
     Indication: CASTLEMAN^S DISEASE
     Route: 065
     Dates: start: 20140618, end: 20150204
  2. IMBRUVICA [Suspect]
     Active Substance: IBRUTINIB
     Indication: CASTLEMAN^S DISEASE
     Route: 065
  3. IMBRUVICA [Suspect]
     Active Substance: IBRUTINIB
     Indication: CASTLEMAN^S DISEASE
     Route: 065

REACTIONS (3)
  - Product use in unapproved indication [Unknown]
  - Off label use [Unknown]
  - Rash [Recovered/Resolved]

NARRATIVE: CASE EVENT DATE: 20140618
